FAERS Safety Report 20758605 (Version 1)
Quarter: 2022Q2

REPORT INFORMATION
  Report Type: Spontaneous
  Country: US (occurrence: US)
  Receive Date: 20220427
  Receipt Date: 20220427
  Transmission Date: 20220721
  Serious: No
  Sender: FDA-Public Use
  Company Number: US-PFIZER INC-202101266841

PATIENT
  Age: 33 Year
  Sex: Female

DRUGS (1)
  1. XELJANZ XR [Suspect]
     Active Substance: TOFACITINIB CITRATE
     Indication: Rheumatoid arthritis
     Dosage: 11 MG, DAILY
     Route: 048
     Dates: start: 20210922, end: 202109

REACTIONS (12)
  - Paraesthesia [Unknown]
  - Visual impairment [Unknown]
  - Chills [Unknown]
  - Lymphadenopathy [Unknown]
  - Paraesthesia [Unknown]
  - Tremor [Not Recovered/Not Resolved]
  - Rash [Unknown]
  - Joint stiffness [Unknown]
  - Erythema [Unknown]
  - Nodule [Unknown]
  - Swelling [Unknown]
  - Condition aggravated [Unknown]

NARRATIVE: CASE EVENT DATE: 20210922
